FAERS Safety Report 18632454 (Version 1)
Quarter: 2020Q4

REPORT INFORMATION
  Report Type: Report from Study
  Country: US (occurrence: US)
  Receive Date: 20201218
  Receipt Date: 20201218
  Transmission Date: 20210114
  Serious: Yes (Hospitalization, Other)
  Sender: FDA-Public Use
  Company Number: US-SA-2020SA255433

PATIENT

DRUGS (1)
  1. ALEMTUZUMAB [Suspect]
     Active Substance: ALEMTUZUMAB
     Indication: MULTIPLE SCLEROSIS
     Dosage: 12 MG, QD
     Route: 041
     Dates: start: 20191104, end: 20191108

REACTIONS (7)
  - Peripheral swelling [Recovered/Resolved]
  - Feeling hot [Recovered/Resolved]
  - Cellulitis [Recovered/Resolved]
  - Heart rate increased [Recovered/Resolved]
  - Erythema [Recovered/Resolved]
  - Skin ulcer [Recovered/Resolved]
  - Pyrexia [Recovered/Resolved]

NARRATIVE: CASE EVENT DATE: 2019
